FAERS Safety Report 8798974 (Version 1)
Quarter: 2012Q4

REPORT INFORMATION
  Report Type: 
  Country: IT (occurrence: IT)
  Receive Date: 20120920
  Receipt Date: 20120920
  Transmission Date: 20130627
  Serious: Yes (Hospitalization)
  Sender: FDA-Public Use
  Company Number: IT-SANOFI-AVENTIS-2012SA065363

PATIENT
  Age: 66 Year
  Sex: Female

DRUGS (2)
  1. CLEXANE [Suspect]
     Indication: THROMBOSIS
     Route: 058
     Dates: start: 20120723, end: 20120801
  2. COUMADIN [Concomitant]
     Indication: ANTICOAGULANT THERAPY
     Route: 048
     Dates: start: 20120101, end: 20120722

REACTIONS (1)
  - Peripheral ischaemia [Unknown]
